FAERS Safety Report 9265027 (Version 1)
Quarter: 2013Q2

REPORT INFORMATION
  Report Type: Spontaneous
  Country: US (occurrence: None)
  Receive Date: 20130425
  Receipt Date: 20130425
  Transmission Date: 20140414
  Serious: Yes (Other)
  Sender: FDA-Public Use
  Company Number: 2013P1005022

PATIENT
  Age: 16 Year
  Sex: Female

DRUGS (1)
  1. MYORISAN 40 MG [Suspect]

REACTIONS (2)
  - Depression [None]
  - Anxiety [None]
